FAERS Safety Report 6383173-3 (Version None)
Quarter: 2009Q3

REPORT INFORMATION
  Report Type: 
  Country: None (occurrence: None)
  Receive Date: 20090929
  Receipt Date: 20090914
  Transmission Date: 20100115
  Serious: Yes (Death, Hospitalization)
  Sender: FDA-Public Use
  Company Number: 2008AL008133

PATIENT
  Age: 76 Year
  Sex: Female
  Weight: 106.5953 kg

DRUGS (25)
  1. DIGOXIN [Suspect]
     Indication: CARDIAC DISORDER
     Dosage: 0.125MG, QOD, PO
     Route: 048
     Dates: start: 20080102, end: 20080229
  2. ALPHAGAN [Concomitant]
  3. COREG [Concomitant]
  4. TIAZAC [Concomitant]
  5. LASIX [Concomitant]
  6. NEURONTIN [Concomitant]
  7. INSULIN [Concomitant]
  8. LIPITOR [Concomitant]
  9. IRON [Concomitant]
  10. IMDUR [Concomitant]
  11. PREVACID [Concomitant]
  12. SYNTHROID [Concomitant]
  13. SINGULAIR [Concomitant]
  14. POTASSIUM CHLORIDE [Concomitant]
  15. PULMICORT [Concomitant]
  16. XOPENEX [Concomitant]
  17. TEMAZEPAM [Concomitant]
  18. PRILOSEC [Concomitant]
  19. AVAPRO [Concomitant]
  20. TYLENOL (CAPLET) [Concomitant]
  21. DIOVAN [Concomitant]
  22. ROBITUSSIN [Concomitant]
  23. ATROVENT [Concomitant]
  24. FERROUS GLUCONATE [Concomitant]
  25. OXYGEN [Concomitant]

REACTIONS (17)
  - CARDIAC FAILURE CONGESTIVE [None]
  - CARDIOACTIVE DRUG LEVEL INCREASED [None]
  - CONGESTIVE CARDIOMYOPATHY [None]
  - COUGH [None]
  - ECONOMIC PROBLEM [None]
  - FAMILY STRESS [None]
  - HEART RATE DECREASED [None]
  - HYPERKALAEMIA [None]
  - HYPOTENSION [None]
  - MEMORY IMPAIRMENT [None]
  - MENTAL STATUS CHANGES [None]
  - MULTIPLE INJURIES [None]
  - OEDEMA PERIPHERAL [None]
  - PAIN [None]
  - RENAL FAILURE [None]
  - RENAL FAILURE ACUTE [None]
  - SOCIAL PROBLEM [None]
